FAERS Safety Report 4277702-3 (Version None)
Quarter: 2004Q1

REPORT INFORMATION
  Report Type: 
  Country: None (occurrence: None)
  Receive Date: 20040123
  Receipt Date: 20031021
  Transmission Date: 20041129
  Serious: Yes (Hospitalization, Other)
  Sender: FDA-Public Use
  Company Number: PHHO2003CL13329

PATIENT
  Age: 38 Year
  Sex: Female

DRUGS (4)
  1. DILTIAZEM [Concomitant]
  2. ANTICOAGULANTS [Concomitant]
  3. ORAL CONTRACEPTIVE NOS [Suspect]
  4. NEORAL [Suspect]
     Indication: RENAL TRANSPLANT
     Dosage: 140 MG / DAY
     Route: 048
     Dates: start: 20020803

REACTIONS (6)
  - CEREBRAL INFARCTION [None]
  - CEREBRAL THROMBOSIS [None]
  - CONVULSION [None]
  - DRUG INTERACTION [None]
  - HEADACHE [None]
  - LABORATORY TEST ABNORMAL [None]
